FAERS Safety Report 23426349 (Version 1)
Quarter: 2024Q1

REPORT INFORMATION
  Report Type: Spontaneous
  Country: NL (occurrence: NL)
  Receive Date: 20240122
  Receipt Date: 20240122
  Transmission Date: 20240410
  Serious: Yes (Other)
  Sender: FDA-Public Use
  Company Number: None

PATIENT
  Age: 58 Year
  Weight: 95 kg

DRUGS (5)
  1. METOPROLOL [Suspect]
     Active Substance: METOPROLOL
     Indication: Hypertension
     Dosage: 1DD1PIECE, TABLET MGA 100MG (SUCCINATE) / BRAND NAME NOT SPECIFIED
     Route: 065
     Dates: start: 20200101, end: 20200401
  2. AMLODIPINE [Concomitant]
     Active Substance: AMLODIPINE BESYLATE
     Dosage: 10 MG (MILLIGRAM), 10MG / BRAND NAME NOT SPECIFIED
     Route: 065
  3. METFORMIN HYDROCHLORIDE [Concomitant]
     Active Substance: METFORMIN HYDROCHLORIDE
     Dosage: 1000 MG (MILLIGRAM), 1000MG / BRAND NAME NOT SPECIFIED
  4. HYDROCHLOROTHIAZIDE [Concomitant]
     Active Substance: HYDROCHLOROTHIAZIDE
     Dosage: 12,5 MG (MILLIGRAM), 12,5MG / BRAND NAME NOT SPECIFIED
     Route: 065
  5. SIMVASTATIN [Concomitant]
     Active Substance: SIMVASTATIN
     Dosage: 40 MG (MILLIGRAM), SIMVASTATINE TABLET FO 40MG / BRAND NAME NOT SPECIFIED
     Route: 065

REACTIONS (1)
  - Erectile dysfunction [Recovered/Resolved]
